FAERS Safety Report 9062418 (Version 3)
Quarter: 2013Q2

REPORT INFORMATION
  Report Type: Spontaneous
  Country: DE (occurrence: DE)
  Receive Date: 20130213
  Receipt Date: 20130508
  Transmission Date: 20140414
  Serious: Yes (Other)
  Sender: FDA-Public Use
  Company Number: DE-GLAXOSMITHKLINE-D0078740A

PATIENT
  Age: 76 Year
  Sex: Male
  Weight: 76 kg

DRUGS (1)
  1. ATMADISC [Suspect]
     Indication: ASTHMA
     Route: 055
     Dates: start: 20121224, end: 20130122

REACTIONS (3)
  - Polymyalgia rheumatica [Unknown]
  - Myalgia [Recovered/Resolved]
  - Musculoskeletal stiffness [Unknown]
